FAERS Safety Report 20871337 (Version 1)
Quarter: 2022Q2

REPORT INFORMATION
  Report Type: Spontaneous
  Country: US (occurrence: US)
  Receive Date: 20220525
  Receipt Date: 20220525
  Transmission Date: 20220720
  Serious: Yes (Death)
  Sender: FDA-Public Use
  Company Number: US-STRIDES ARCOLAB LIMITED-2022SP005900

PATIENT
  Age: 14 Year
  Sex: Male

DRUGS (56)
  1. PREDNISOLONE [Suspect]
     Active Substance: PREDNISOLONE
     Indication: B precursor type acute leukaemia
     Dosage: UNK (AS A PART OF CHILDREN^S CANCER GROUP (CCG) PROTOCOL 1961)
     Route: 065
  2. PREDNISOLONE [Suspect]
     Active Substance: PREDNISOLONE
     Indication: Central nervous system leukaemia
  3. DOXORUBICIN [Suspect]
     Active Substance: DOXORUBICIN
     Indication: B precursor type acute leukaemia
     Dosage: UNK (AS A PART OF CHILDREN^S CANCER GROUP (CCG) PROTOCOL 1961)
     Route: 065
  4. DOXORUBICIN [Suspect]
     Active Substance: DOXORUBICIN
     Indication: Central nervous system leukaemia
     Dosage: UNK (AS A PART OF CHILDREN^S ONCOLOGY GROUP (COG) PROTOCOL AALL02P2)
     Route: 065
  5. DOXORUBICIN [Suspect]
     Active Substance: DOXORUBICIN
     Dosage: UNK (AFTER LAST BONE MARROW RELAPSE)
     Route: 065
  6. DEXAMETHASONE [Suspect]
     Active Substance: DEXAMETHASONE
     Indication: B precursor type acute leukaemia
     Dosage: UNK (AS A PART OF CHILDREN^S CANCER GROUP (CCG) PROTOCOL 1961)
     Route: 065
  7. DEXAMETHASONE [Suspect]
     Active Substance: DEXAMETHASONE
     Indication: Central nervous system leukaemia
     Dosage: UNK (AS A PART OF CHILDREN^S ONCOLOGY GROUP (COG) PROTOCOL AALL02P2)
     Route: 065
  8. DEXAMETHASONE [Suspect]
     Active Substance: DEXAMETHASONE
     Dosage: UNK (AFTER CNS RELAPSE WITH LEPTOMENINGEAL INVOLVEMENT)
     Route: 065
  9. DEXAMETHASONE [Suspect]
     Active Substance: DEXAMETHASONE
     Dosage: UNK (AFTER LAST BONE MARROW RELAPSE)
     Route: 065
  10. ETOPOSIDE [Suspect]
     Active Substance: ETOPOSIDE
     Indication: B precursor type acute leukaemia
     Dosage: UNK (AS A PART OF CHILDREN^S ONCOLOGY GROUP (COG) PROTOCOL AALL02P2)
     Route: 065
  11. ETOPOSIDE [Suspect]
     Active Substance: ETOPOSIDE
     Indication: Central nervous system leukaemia
     Dosage: UNK (AFTER SECOND RELAPSE IN BONE MARROW AND CNS)
     Route: 065
  12. ETOPOSIDE [Suspect]
     Active Substance: ETOPOSIDE
     Dosage: UNK (AFTER CNS RELAPSE WITH LEPTOMENINGEAL INVOLVEMENT)
     Route: 065
  13. METHOTREXATE [Suspect]
     Active Substance: METHOTREXATE
     Indication: B precursor type acute leukaemia
     Dosage: UNK (AS A PART OF CHILDREN^S CANCER GROUP (CCG) PROTOCOL 1961)
     Route: 037
  14. METHOTREXATE [Suspect]
     Active Substance: METHOTREXATE
     Indication: Central nervous system leukaemia
     Dosage: UNK (AS A PART OF CHILDREN^S CANCER GROUP (CCG) PROTOCOL 1961--ESCALATING METHOTREXATE)
     Route: 065
  15. METHOTREXATE [Suspect]
     Active Substance: METHOTREXATE
     Dosage: UNK (AS A PART OF CHILDREN^S ONCOLOGY GROUP (COG) PROTOCOL AALL02P2)
     Route: 037
  16. METHOTREXATE [Suspect]
     Active Substance: METHOTREXATE
     Dosage: UNK (AS A PART OF CHILDREN^S ONCOLOGY GROUP (COG) PROTOCOL AALL02P2)
     Route: 065
  17. METHOTREXATE [Suspect]
     Active Substance: METHOTREXATE
     Dosage: UNK (ESCALATING METHOTREXATE WITH CRISANTASPASE)
     Route: 065
  18. METHOTREXATE [Suspect]
     Active Substance: METHOTREXATE
     Dosage: UNK (MULTIPLE DOSES WITH CYTARABINE)
  19. METHOTREXATE [Suspect]
     Active Substance: METHOTREXATE
     Dosage: UNK (SINGLE DOSE)
  20. HYDROCORTISONE [Suspect]
     Active Substance: HYDROCORTISONE
     Indication: B precursor type acute leukaemia
     Dosage: UNK (AS A PART OF CHILDREN^S ONCOLOGY GROUP (COG) PROTOCOL AALL02P2- INTRATHECAL TRIPLE THERAPY)
     Route: 037
  21. HYDROCORTISONE [Suspect]
     Active Substance: HYDROCORTISONE
     Indication: Central nervous system leukaemia
     Dosage: UNK (ALONG WITH RITUXIMAB)
  22. DAUNORUBICIN [Suspect]
     Active Substance: DAUNORUBICIN
     Indication: B precursor type acute leukaemia
     Dosage: UNK (AS A PART OF CHILDREN^S CANCER GROUP (CCG) PROTOCOL 1961)
     Route: 065
  23. DAUNORUBICIN [Suspect]
     Active Substance: DAUNORUBICIN
     Indication: Central nervous system leukaemia
     Dosage: UNK (AS A PART OF CHILDREN^S ONCOLOGY GROUP (COG) PROTOCOL AALL02P2)
     Route: 065
  24. VINCRISTINE [Suspect]
     Active Substance: VINCRISTINE
     Indication: B precursor type acute leukaemia
     Dosage: UNK (AS A PART OF CHILDREN^S CANCER GROUP (CCG) PROTOCOL 1961)
     Route: 065
  25. VINCRISTINE [Suspect]
     Active Substance: VINCRISTINE
     Indication: Central nervous system leukaemia
     Dosage: UNK (AS A PART OF CHILDREN^S ONCOLOGY GROUP (COG) PROTOCOL AALL02P2)
     Route: 065
  26. VINCRISTINE [Suspect]
     Active Substance: VINCRISTINE
     Dosage: UNK (AFTER BONE MARROW RELAPSE)
     Route: 065
  27. CYCLOPHOSPHAMIDE [Suspect]
     Active Substance: CYCLOPHOSPHAMIDE
     Indication: B precursor type acute leukaemia
     Dosage: UNK (AS A PART OF CHILDREN^S CANCER GROUP (CCG) PROTOCOL 1961)
     Route: 065
  28. CYCLOPHOSPHAMIDE [Suspect]
     Active Substance: CYCLOPHOSPHAMIDE
     Indication: Central nervous system leukaemia
     Dosage: UNK (AS A PART OF CHILDREN^S ONCOLOGY GROUP (COG) PROTOCOL AALL02P2)
     Route: 065
  29. CYCLOPHOSPHAMIDE [Suspect]
     Active Substance: CYCLOPHOSPHAMIDE
     Dosage: UNK (AFTER CNS RELAPSE WITH LEPTOMENINGEAL INVOLVEMENT)
     Route: 065
  30. CYTARABINE [Suspect]
     Active Substance: CYTARABINE
     Indication: B precursor type acute leukaemia
     Dosage: UNK, AS A PART OF CHILDREN^S CANCER GROUP (CCG) PROTOCOL 1961
     Route: 065
  31. CYTARABINE [Suspect]
     Active Substance: CYTARABINE
     Indication: Central nervous system leukaemia
     Dosage: UNK (AS A PART OF CHILDREN^S ONCOLOGY GROUP (COG) PROTOCOL AALL02P2)
     Route: 065
  32. CYTARABINE [Suspect]
     Active Substance: CYTARABINE
     Dosage: UNK (AS A PART OF CHILDREN^S ONCOLOGY GROUP (COG) PROTOCOL AALL02P2- INTRATHECAL TRIPLE THERAPY)
     Route: 037
  33. CYTARABINE [Suspect]
     Active Substance: CYTARABINE
     Dosage: UNK (AFTER SECOND RELAPSE IN HIS BONE MARROW AND CNS)
     Route: 065
  34. CYTARABINE [Suspect]
     Active Substance: CYTARABINE
     Dosage: UNK (MULTIPLE DOSES) (LIPOSOMAL CYTARABINE)
  35. MERCAPTOPURINE [Suspect]
     Active Substance: MERCAPTOPURINE
     Indication: B precursor type acute leukaemia
     Dosage: UNK (AS A PART OF CHILDREN^S CANCER GROUP (CCG) PROTOCOL 1961)
     Route: 065
  36. MERCAPTOPURINE [Suspect]
     Active Substance: MERCAPTOPURINE
     Indication: Central nervous system leukaemia
     Dosage: UNK (AS A PART OF CHILDREN^S ONCOLOGY GROUP (COG) PROTOCOL AALL02P2)
     Route: 065
  37. ASPARAGINASE ERWINIA CHRYSANTHEMI [Suspect]
     Active Substance: ASPARAGINASE ERWINIA CHRYSANTHEMI
     Indication: B precursor type acute leukaemia
     Dosage: UNK (AS A PART OF CHILDREN^S ONCOLOGY GROUP (COG) PROTOCOL AALL02P2)
     Route: 065
  38. ASPARAGINASE ERWINIA CHRYSANTHEMI [Suspect]
     Active Substance: ASPARAGINASE ERWINIA CHRYSANTHEMI
     Indication: Central nervous system leukaemia
     Dosage: UNK (AFTER SECOND RELAPSE IN BONE MARROW AND CNS)
     Route: 065
  39. BORTEZOMIB [Suspect]
     Active Substance: BORTEZOMIB
     Indication: B precursor type acute leukaemia
     Dosage: UNK (AFTER FINAL BONE MARROW RELAPSE)
     Route: 065
  40. BORTEZOMIB [Suspect]
     Active Substance: BORTEZOMIB
     Indication: Central nervous system leukaemia
  41. IFOSFAMIDE [Suspect]
     Active Substance: IFOSFAMIDE
     Indication: B precursor type acute leukaemia
     Dosage: UNK (AFTER SECOND RELAPSE IN BONE MARROW AND CNS)
     Route: 065
  42. IFOSFAMIDE [Suspect]
     Active Substance: IFOSFAMIDE
     Indication: Central nervous system leukaemia
  43. TEMOZOLOMIDE [Suspect]
     Active Substance: TEMOZOLOMIDE
     Indication: B precursor type acute leukaemia
     Dosage: UNK (AFTER DETECTION OF CRANIAL NERVE INVOLVEMENT)
     Route: 065
  44. TEMOZOLOMIDE [Suspect]
     Active Substance: TEMOZOLOMIDE
     Indication: Central nervous system leukaemia
  45. TOPOTECAN [Suspect]
     Active Substance: TOPOTECAN HYDROCHLORIDE
     Indication: B precursor type acute leukaemia
     Dosage: UNK (MULTIPLE DOSES)
  46. TOPOTECAN [Suspect]
     Active Substance: TOPOTECAN HYDROCHLORIDE
     Indication: Central nervous system leukaemia
  47. THALIDOMIDE [Suspect]
     Active Substance: THALIDOMIDE
     Indication: B precursor type acute leukaemia
     Dosage: UNK (AFTER CNS RELAPSE WITH LEPTOMENINGEAL INVOLVEMENT)
     Route: 065
  48. THALIDOMIDE [Suspect]
     Active Substance: THALIDOMIDE
     Indication: Central nervous system leukaemia
  49. RITUXIMAB [Suspect]
     Active Substance: RITUXIMAB
     Indication: B precursor type acute leukaemia
     Dosage: UNK (MULTIPLE DOSES)
  50. RITUXIMAB [Suspect]
     Active Substance: RITUXIMAB
     Indication: Central nervous system leukaemia
     Dosage: UNK
  51. THIOGUANINE ANHYDROUS [Suspect]
     Active Substance: THIOGUANINE ANHYDROUS
     Indication: B precursor type acute leukaemia
     Dosage: UNK (AS A PART OF CHILDREN^S CANCER GROUP (CCG) PROTOCOL 1961)
     Route: 065
  52. THIOGUANINE ANHYDROUS [Suspect]
     Active Substance: THIOGUANINE ANHYDROUS
     Indication: Central nervous system leukaemia
  53. PEGASPARGASE [Suspect]
     Active Substance: PEGASPARGASE
     Indication: B precursor type acute leukaemia
     Dosage: UNK
     Route: 065
  54. PEGASPARGASE [Suspect]
     Active Substance: PEGASPARGASE
     Indication: Central nervous system leukaemia
  55. EPRATUZUMAB [Concomitant]
     Active Substance: EPRATUZUMAB
     Indication: B precursor type acute leukaemia
     Dosage: UNK
  56. EPRATUZUMAB [Concomitant]
     Active Substance: EPRATUZUMAB
     Indication: Central nervous system leukaemia

REACTIONS (2)
  - Treatment failure [Fatal]
  - Off label use [Unknown]
